FAERS Safety Report 8571568 (Version 3)
Quarter: 2015Q1

REPORT INFORMATION
  Report Type: Spontaneous
  Country: US (occurrence: US)
  Receive Date: 20120521
  Receipt Date: 20150129
  Transmission Date: 20150721
  Serious: Yes (Other)
  Sender: FDA-Public Use
  Company Number: US-BAYER-2012-048446

PATIENT
  Age: 27 Year
  Sex: Female
  Weight: 84.81 kg

DRUGS (2)
  1. MIRENA [Suspect]
     Active Substance: LEVONORGESTREL
     Indication: CONTRACEPTION
     Dosage: 20 MCG/24HR, CONT
     Route: 015
     Dates: start: 20110511, end: 20120522
  2. ADDERALL XR [Concomitant]
     Active Substance: AMPHETAMINE ASPARTATE\AMPHETAMINE SULFATE\DEXTROAMPHETAMINE SACCHARATE\DEXTROAMPHETAMINE SULFATE
     Indication: ATTENTION DEFICIT/HYPERACTIVITY DISORDER
     Dosage: UNK
     Dates: start: 2008

REACTIONS (15)
  - Injury [None]
  - Mood altered [None]
  - Libido decreased [None]
  - Fear [None]
  - Dyspareunia [None]
  - Pain [None]
  - Emotional distress [None]
  - Device issue [None]
  - Depression [None]
  - Uterine perforation [None]
  - Menorrhagia [None]
  - Device dislocation [None]
  - Back pain [None]
  - Painful defaecation [None]
  - Anxiety [None]

NARRATIVE: CASE EVENT DATE: 201105
